FAERS Safety Report 25730294 (Version 2)
Quarter: 2025Q3

REPORT INFORMATION
  Report Type: Spontaneous
  Country: EU (occurrence: EU)
  Receive Date: 20250827
  Receipt Date: 20250905
  Transmission Date: 20251020
  Serious: Yes (Other)
  Sender: CELLTRION
  Company Number: EU-ABBVIE-6384163

PATIENT

DRUGS (13)
  1. HUMIRA [Suspect]
     Active Substance: ADALIMUMAB
     Indication: Crohn^s disease
     Dosage: 40 MILLIGRAM EVERY 2 WEEKS
     Route: 058
     Dates: start: 201904
  2. HUMIRA [Suspect]
     Active Substance: ADALIMUMAB
     Route: 058
     Dates: start: 2023
  3. HUMIRA [Suspect]
     Active Substance: ADALIMUMAB
     Dosage: 40 MILLIGRAM EVERY 1 WEEK
     Route: 058
     Dates: start: 202012, end: 202202
  4. ADALIMUMAB [Suspect]
     Active Substance: ADALIMUMAB
     Indication: Crohn^s disease
     Dosage: 40 MILLIGRAM EVERY 2 WEEKS
     Route: 058
     Dates: start: 201904
  5. ADALIMUMAB [Suspect]
     Active Substance: ADALIMUMAB
     Route: 058
     Dates: start: 2023
  6. ADALIMUMAB [Suspect]
     Active Substance: ADALIMUMAB
     Dosage: 40 MILLIGRAM EVERY 1 WEEK
     Route: 058
     Dates: start: 202012, end: 202202
  7. RISANKIZUMAB [Suspect]
     Active Substance: RISANKIZUMAB
     Indication: Crohn^s disease
     Route: 042
     Dates: start: 202312, end: 202312
  8. RISANKIZUMAB [Suspect]
     Active Substance: RISANKIZUMAB
     Route: 042
  9. RISANKIZUMAB [Suspect]
     Active Substance: RISANKIZUMAB
     Route: 042
  10. RISANKIZUMAB [Suspect]
     Active Substance: RISANKIZUMAB
     Route: 058
  11. UPADACITINIB [Suspect]
     Active Substance: UPADACITINIB
     Indication: Crohn^s disease
     Route: 048
     Dates: start: 202406, end: 202408
  12. UPADACITINIB [Suspect]
     Active Substance: UPADACITINIB
     Route: 048
     Dates: start: 202408
  13. UPADACITINIB [Suspect]
     Active Substance: UPADACITINIB
     Route: 048
     Dates: start: 202501

REACTIONS (8)
  - Crohn^s disease [Unknown]
  - Rectal stenosis [Unknown]
  - Anastomotic stenosis [Unknown]
  - Anal fistula [Unknown]
  - Stoma site ulcer [Unknown]
  - Iron deficiency anaemia [Not Recovered/Not Resolved]
  - Inflammation [Unknown]
  - Abdominal pain [Unknown]

NARRATIVE: CASE EVENT DATE: 20190401
